FAERS Safety Report 23104911 (Version 1)
Quarter: 2023Q4

REPORT INFORMATION
  Report Type: Spontaneous
  Country: US (occurrence: None)
  Receive Date: 20231024
  Receipt Date: 20231024
  Transmission Date: 20240110
  Serious: No
  Sender: FDA-Public Use
  Company Number: None

PATIENT
  Age: 74 Year
  Sex: Male

DRUGS (1)
  1. IDECABTAGENE VICLEUCEL [Suspect]
     Active Substance: IDECABTAGENE VICLEUCEL
     Dates: start: 20230612

REACTIONS (4)
  - Cytokine release syndrome [None]
  - Neurotoxicity [None]
  - Immune effector cell-associated neurotoxicity syndrome [None]
  - Ventricular tachycardia [None]
